FAERS Safety Report 23516044 (Version 1)
Quarter: 2024Q1

REPORT INFORMATION
  Report Type: 
  Country: None (occurrence: None)
  Receive Date: 20240213
  Receipt Date: 20240213
  Transmission Date: 20240409
  Serious: No
  Sender: FDA-Public Use
  Company Number: CA-ROCHE-2776675

PATIENT
  Age: 31 Year

DRUGS (2)
  1. OCREVUS [Suspect]
     Active Substance: OCRELIZUMAB
     Dosage: 300 MG AT DAY 0 AND 14, THEN 600 MG EVERY 6 MONTH
     Dates: start: 20210209
  2. BENADRYL [Suspect]
     Active Substance: DIPHENHYDRAMINE HYDROCHLORIDE

REACTIONS (15)
  - Coeliac disease [None]
  - Oral herpes [None]
  - Infusion related reaction [None]
  - Taste disorder [None]
  - Hypoaesthesia [None]
  - Aphasia [None]
  - Anxiety [None]
  - Memory impairment [None]
  - Fatigue [None]
  - Somnolence [None]
  - Dysgeusia [None]
  - Brain fog [None]
  - Dizziness [None]
  - Vertigo [None]
  - Infusion related reaction [None]

NARRATIVE: CASE EVENT DATE: 20210209
